FAERS Safety Report 18207924 (Version 1)
Quarter: 2020Q3

REPORT INFORMATION
  Report Type: Spontaneous
  Country: US (occurrence: US)
  Receive Date: 20200828
  Receipt Date: 20200828
  Transmission Date: 20201103
  Serious: Yes (Other)
  Sender: FDA-Public Use
  Company Number: US-UCBSA-2020032952

PATIENT
  Age: 41 Year

DRUGS (1)
  1. CIMZIA [Suspect]
     Active Substance: CERTOLIZUMAB PEGOL
     Indication: RHEUMATOID ARTHRITIS
     Dosage: UNK, EV 3 WEEKS

REACTIONS (7)
  - Haemorrhage [Unknown]
  - Splenomegaly [Unknown]
  - Abdominal distension [Unknown]
  - Inflammatory bowel disease [Unknown]
  - Pancreatic disorder [Unknown]
  - Product use issue [Unknown]
  - Thyroid mass [Unknown]
